FAERS Safety Report 19267315 (Version 3)
Quarter: 2021Q3

REPORT INFORMATION
  Report Type: Spontaneous
  Country: FR (occurrence: FR)
  Receive Date: 20210517
  Receipt Date: 20210820
  Transmission Date: 20211014
  Serious: Yes (Hospitalization)
  Sender: FDA-Public Use
  Company Number: FR-PFIZER INC-2021505990

PATIENT
  Age: 60 Year
  Sex: Male
  Weight: 75 kg

DRUGS (5)
  1. METHOTREXATE MYLAN [Suspect]
     Active Substance: METHOTREXATE SODIUM
     Indication: CENTRAL NERVOUS SYSTEM LYMPHOMA
     Dosage: DAY 1 AND DAY15, CYCLIC
     Route: 042
     Dates: start: 20210119, end: 20210311
  2. RIXATHON [Suspect]
     Active Substance: RITUXIMAB
     Indication: CENTRAL NERVOUS SYSTEM LYMPHOMA
     Dosage: CYCLE 1: 649 MG, CYCLE 2: 664 MG
     Route: 042
     Dates: start: 20210119, end: 20210311
  3. NATULAN [Suspect]
     Active Substance: PROCARBAZINE HYDROCHLORIDE
     Indication: CENTRAL NERVOUS SYSTEM LYMPHOMA
     Dosage: FROM DAY 1 TO DAY 7/CYCLE
     Route: 048
     Dates: start: 20210119, end: 20210311
  4. VINCRISTINE TEVA [Suspect]
     Active Substance: VINCRISTINE
     Indication: CENTRAL NERVOUS SYSTEM LYMPHOMA
     Dosage: 2 MG ON DAY 1 AND DAY 15, CYCLIC
     Route: 042
     Dates: start: 20210119, end: 20210311
  5. METHYLPREDNISOLONE. [Suspect]
     Active Substance: METHYLPREDNISOLONE
     Dosage: 60 MG, DAILY FROM DAY 1 TO DAY 5 AND ON DAY 15
     Route: 042
     Dates: start: 20210119, end: 20210311

REACTIONS (3)
  - COVID-19 pneumonia [Recovering/Resolving]
  - Off label use [Unknown]
  - Product use issue [Unknown]

NARRATIVE: CASE EVENT DATE: 20210119
